FAERS Safety Report 8843677 (Version 2)
Quarter: 2015Q1

REPORT INFORMATION
  Report Type: Report from Study
  Country: US (occurrence: US)
  Receive Date: 20121016
  Receipt Date: 20150205
  Transmission Date: 20150721
  Serious: Yes (Other)
  Sender: FDA-Public Use
  Company Number: US-ROCHE-1109852

PATIENT
  Sex: Female
  Weight: 88 kg

DRUGS (1)
  1. NUTROPIN AQ [Suspect]
     Active Substance: SOMATROPIN
     Indication: HYPOPITUITARISM
     Dosage: 0.08ML / INJECTION
     Route: 058

REACTIONS (3)
  - Brain neoplasm [Unknown]
  - Nervous system disorder [Unknown]
  - Fatigue [Unknown]
